FAERS Safety Report 22965555 (Version 4)
Quarter: 2024Q1

REPORT INFORMATION
  Report Type: Spontaneous
  Country: US (occurrence: US)
  Receive Date: 20230921
  Receipt Date: 20240117
  Transmission Date: 20240409
  Serious: Yes (Other)
  Sender: FDA-Public Use
  Company Number: US-MLMSERVICE-20230907-4528994-1

PATIENT
  Age: 40 Year
  Sex: Female
  Weight: 62.6 kg

DRUGS (2)
  1. BUPRENORPHINE [Suspect]
     Active Substance: BUPRENORPHINE
     Dosage: UNK
  2. FENTANYL [Concomitant]
     Active Substance: FENTANYL\FENTANYL CITRATE
     Indication: Drug use disorder
     Dosage: UNK
     Route: 042

REACTIONS (2)
  - Exposure via body fluid [Recovered/Resolved]
  - Drug withdrawal syndrome [Recovered/Resolved]
